FAERS Safety Report 20867590 (Version 1)
Quarter: 2022Q2

REPORT INFORMATION
  Report Type: Spontaneous
  Country: US (occurrence: None)
  Receive Date: 20220524
  Receipt Date: 20220524
  Transmission Date: 20220721
  Serious: No
  Sender: FDA-Public Use
  Company Number: 2022A172276

PATIENT
  Sex: Male
  Weight: 97.5 kg

DRUGS (1)
  1. SYMLIN [Suspect]
     Active Substance: PRAMLINTIDE ACETATE
     Indication: Type 1 diabetes mellitus
     Dosage: 15UG/ML
     Route: 058

REACTIONS (8)
  - Abdominal discomfort [Unknown]
  - Weight decreased [Unknown]
  - Eating disorder [Unknown]
  - Incorrect dose administered by device [Unknown]
  - Wrong technique in device usage process [Unknown]
  - Intentional overdose [Unknown]
  - Product use issue [Not Recovered/Not Resolved]
  - Product quality issue [Unknown]
